FAERS Safety Report 17367956 (Version 3)
Quarter: 2020Q2

REPORT INFORMATION
  Report Type: Spontaneous
  Country: FR (occurrence: FR)
  Receive Date: 20200204
  Receipt Date: 20200407
  Transmission Date: 20200713
  Serious: Yes (Other)
  Sender: FDA-Public Use
  Company Number: FR-BAXTER-2020BAX002118

PATIENT
  Age: 11 Year
  Sex: Male
  Weight: 46 kg

DRUGS (13)
  1. CELLTOP 100 MG/5 ML, SOLUTION INJECTABLE POUR PERFUSION [Suspect]
     Active Substance: ETOPOSIDE
     Indication: MEDULLOBLASTOMA RECURRENT
     Dosage: 5 INJECTIONS EVERY 4 WEEKS
     Route: 039
     Dates: start: 20190429
  2. AVASTIN [Suspect]
     Active Substance: BEVACIZUMAB
     Indication: MEDULLOBLASTOMA RECURRENT
     Dosage: ((MAMMAL/HAMSTER/CHO CELLS));10 MILLIGRAM/KILOGRAM, 1/WEEK
     Route: 042
     Dates: start: 20190429
  3. TRIMETHOPRIM. [Concomitant]
     Active Substance: TRIMETHOPRIM
     Indication: OPPORTUNISTIC INFECTION PROPHYLAXIS
     Route: 048
  4. CELLTOP 50 MG, CAPSULE [Suspect]
     Active Substance: ETOPOSIDE
     Indication: MEDULLOBLASTOMA RECURRENT
     Dosage: 35-50 MG/M2, THE FIRST 3 WEEKS OF EACH PART OF EACH CYCLE
     Route: 048
     Dates: start: 20190429
  5. THALIDOMIDE [Suspect]
     Active Substance: THALIDOMIDE
     Indication: MEDULLOBLASTOMA RECURRENT
     Dosage: 3 MILLIGRAM/KILOGRAM
     Route: 048
     Dates: start: 20190429, end: 20191115
  6. SULFAMETHOXAZOLE [Concomitant]
     Active Substance: SULFAMETHOXAZOLE
     Dosage: 2400 MILLIGRAM, 1/WEEK
     Route: 048
  7. CYTARABINE. [Suspect]
     Active Substance: CYTARABINE
     Indication: MEDULLOBLASTOMA RECURRENT
     Dosage: 60 MILLIGRAM, 1/WEEK
     Route: 037
     Dates: start: 20190513
  8. CELECOXIB. [Suspect]
     Active Substance: CELECOXIB
     Indication: MEDULLOBLASTOMA RECURRENT
     Dosage: QD
     Route: 048
     Dates: start: 20190429
  9. TRIMETHOPRIM. [Concomitant]
     Active Substance: TRIMETHOPRIM
     Dosage: 480 MILLIGRAM, 1/WEEK
     Route: 048
  10. FENOFIBRATE. [Suspect]
     Active Substance: FENOFIBRATE
     Indication: MEDULLOBLASTOMA RECURRENT
     Dosage: 90 MILLIGRAM/SQ. METER, QD
     Route: 048
     Dates: start: 20190429
  11. ENDOXAN 50 MG, COMPRIM? ENROB? [Suspect]
     Active Substance: CYCLOPHOSPHAMIDE
     Indication: MEDULLOBLASTOMA RECURRENT
     Dosage: 2.5 MG/KG (MAX 100 MG), THE LAST 3 WEEKS OF EACH PART OF EACH CYCLE 2.5 MILLIGRAMS/KILOGRAMS
     Route: 048
     Dates: start: 20190520
  12. ENANTONE MONATS-DEPOT [Suspect]
     Active Substance: LEUPROLIDE ACETATE
     Indication: BLOOD GROWTH HORMONE DECREASED
     Route: 058
     Dates: start: 201910
  13. SULFAMETHOXAZOLE [Concomitant]
     Active Substance: SULFAMETHOXAZOLE
     Indication: OPPORTUNISTIC INFECTION PROPHYLAXIS
     Route: 048

REACTIONS (2)
  - Bipolar disorder [Not Recovered/Not Resolved]
  - Condition aggravated [Not Recovered/Not Resolved]

NARRATIVE: CASE EVENT DATE: 201910
